FAERS Safety Report 13761270 (Version 3)
Quarter: 2018Q2

REPORT INFORMATION
  Report Type: Report from Study
  Country: CH (occurrence: CH)
  Receive Date: 20170717
  Receipt Date: 20180508
  Transmission Date: 20180711
  Serious: Yes (Other)
  Sender: FDA-Public Use
  Company Number: CH-GILEAD-2017-0283012

PATIENT
  Age: 51 Year
  Sex: Male
  Weight: 80 kg

DRUGS (6)
  1. SOFOSBUVIR [Suspect]
     Active Substance: SOFOSBUVIR
     Indication: HEPATITIS C
     Dosage: UNK
     Route: 065
     Dates: start: 2015, end: 2016
  2. ALDACTONE [Concomitant]
     Active Substance: SPIRONOLACTONE
     Indication: ASCITES
     Dosage: 200 MG, QD
     Route: 048
     Dates: end: 201607
  3. INDERAL [Concomitant]
     Active Substance: PROPRANOLOL HYDROCHLORIDE
     Indication: VARICES OESOPHAGEAL
     Dosage: 40 MG, BID
     Route: 048
     Dates: end: 201607
  4. NORFLOXACINE [Concomitant]
     Active Substance: NORFLOXACIN
     Indication: PERITONITIS BACTERIAL
     Dosage: 400 MG, QD
     Route: 048
     Dates: end: 201607
  5. TORASEMIDE [Concomitant]
     Active Substance: TORSEMIDE
     Indication: ASCITES
     Dosage: 5 MG, QD
     Route: 048
     Dates: end: 201607
  6. DACLATASVIR. [Suspect]
     Active Substance: DACLATASVIR
     Indication: HEPATITIS C
     Dosage: UNK
     Route: 065
     Dates: start: 2015, end: 2016

REACTIONS (7)
  - Hepatocellular carcinoma [Recovered/Resolved]
  - Drug ineffective [Unknown]
  - Hepatitis C [Not Recovered/Not Resolved]
  - Genotype drug resistance test positive [Unknown]
  - Liver transplant [Unknown]
  - Liver function test increased [Unknown]
  - Treatment failure [Unknown]

NARRATIVE: CASE EVENT DATE: 20160429
